FAERS Safety Report 14991601 (Version 1)
Quarter: 2018Q2

REPORT INFORMATION
  Report Type: Spontaneous
  Country: US (occurrence: US)
  Receive Date: 20180608
  Receipt Date: 20180608
  Transmission Date: 20180711
  Serious: Yes (Hospitalization)
  Sender: FDA-Public Use
  Company Number: US-ANIPHARMA-2018-US-009466

PATIENT
  Age: 68 Year
  Sex: Male

DRUGS (3)
  1. XTANDI [Suspect]
     Active Substance: ENZALUTAMIDE
  2. CASODEX [Suspect]
     Active Substance: BICALUTAMIDE
     Indication: PROSTATE CANCER
     Route: 048
     Dates: start: 2013
  3. LUPRON [Concomitant]
     Active Substance: LEUPROLIDE ACETATE
     Route: 065

REACTIONS (10)
  - Disease progression [Unknown]
  - Weight decreased [Unknown]
  - Musculoskeletal pain [Unknown]
  - Metastasis [Unknown]
  - Proctitis [Unknown]
  - Urinary tract infection [Unknown]
  - Drug ineffective [Unknown]
  - Prostatic specific antigen increased [Unknown]
  - Haematoma [Unknown]
  - Back pain [Unknown]

NARRATIVE: CASE EVENT DATE: 20131023
